FAERS Safety Report 8997492 (Version 5)
Quarter: 2013Q2

REPORT INFORMATION
  Report Type: Spontaneous
  Country: US (occurrence: US)
  Receive Date: 20130104
  Receipt Date: 20130604
  Transmission Date: 20140414
  Serious: Yes (Hospitalization, Disabling, Other)
  Sender: FDA-Public Use
  Company Number: US-009507513-1212USA010849

PATIENT
  Sex: Female
  Weight: 51.7 kg

DRUGS (5)
  1. FOSAMAX [Suspect]
     Indication: OSTEOPOROSIS
     Dosage: 70 MG, QW
     Route: 048
     Dates: end: 200901
  2. FOSAMAX [Suspect]
     Indication: OSTEOPENIA
  3. WARFARIN [Concomitant]
     Indication: THROMBOSIS PROPHYLAXIS
     Dosage: UNK
     Dates: start: 1989
  4. COUMADIN [Concomitant]
  5. EVISTA [Concomitant]
     Indication: OSTEOPOROSIS
     Dosage: UNK
     Dates: end: 20040914

REACTIONS (75)
  - Femur fracture [Not Recovered/Not Resolved]
  - Open reduction of fracture [Unknown]
  - Explorative laparotomy [Unknown]
  - High frequency ablation [Unknown]
  - Cardiac pacemaker insertion [Unknown]
  - Small intestinal resection [Unknown]
  - Surgery [Unknown]
  - Surgery [Unknown]
  - Femur fracture [Not Recovered/Not Resolved]
  - Coronary artery bypass [Unknown]
  - Fractured sacrum [Unknown]
  - Vertebroplasty [Unknown]
  - Low turnover osteopathy [Not Recovered/Not Resolved]
  - Stress fracture [Not Recovered/Not Resolved]
  - Osteoporosis [Not Recovered/Not Resolved]
  - Cholecystectomy [Unknown]
  - Small intestinal obstruction [Unknown]
  - Thyroidectomy [Unknown]
  - Fractured sacrum [Unknown]
  - Facial bones fracture [Unknown]
  - Fall [Unknown]
  - Tooth extraction [Unknown]
  - Hypothyroidism [Unknown]
  - Atrial fibrillation [Unknown]
  - Tremor [Unknown]
  - Hypertension [Unknown]
  - Small intestinal obstruction [Unknown]
  - Abdominal adhesions [Unknown]
  - Bradycardia [Unknown]
  - Atrial fibrillation [Unknown]
  - Angina pectoris [Unknown]
  - Bursitis [Unknown]
  - Osteoarthritis [Unknown]
  - Irritable bowel syndrome [Unknown]
  - Palpitations [Unknown]
  - Patella fracture [Unknown]
  - Breast disorder female [Unknown]
  - Urinary retention [Unknown]
  - Sciatica [Unknown]
  - Osteoarthritis [Unknown]
  - Cataract operation [Unknown]
  - Gait disturbance [Unknown]
  - Varicose vein [Unknown]
  - Memory impairment [Unknown]
  - Tenosynovitis stenosans [Unknown]
  - Local reaction [Unknown]
  - Osteoarthritis [Unknown]
  - Localised infection [Unknown]
  - Hand deformity [Unknown]
  - Gait disturbance [Unknown]
  - Vascular calcification [Unknown]
  - Scoliosis [Unknown]
  - Intervertebral disc degeneration [Unknown]
  - Tendonitis [Unknown]
  - Lumbar radiculopathy [Unknown]
  - Gait disturbance [Unknown]
  - Tendonitis [Unknown]
  - Carpal tunnel syndrome [Unknown]
  - Drug intolerance [Not Recovered/Not Resolved]
  - Spinal osteoarthritis [Unknown]
  - Spinal osteoarthritis [Unknown]
  - Kyphoscoliosis [Unknown]
  - Bursitis [Unknown]
  - Oedema [Unknown]
  - Patella fracture [Unknown]
  - Fall [Unknown]
  - Myofascial pain syndrome [Unknown]
  - Dry eye [Unknown]
  - Pollakiuria [Unknown]
  - Dry mouth [Unknown]
  - Gastrooesophageal reflux disease [Unknown]
  - Diarrhoea [Unknown]
  - Oedema peripheral [Unknown]
  - Alopecia [Unknown]
  - Oedema peripheral [Unknown]
